FAERS Safety Report 4501730-3 (Version None)
Quarter: 2004Q4

REPORT INFORMATION
  Report Type: 
  Country: None (occurrence: None)
  Receive Date: 20040927
  Receipt Date: 20040524
  Transmission Date: 20050328
  Serious: Yes (Hospitalization)
  Sender: FDA-Public Use
  Company Number: USA040568451

PATIENT
  Age: 10 Year
  Sex: Male
  Weight: 31 kg

DRUGS (4)
  1. STRATTERA [Suspect]
     Indication: ATTENTION DEFICIT/HYPERACTIVITY DISORDER
     Dosage: 25 MG DAY
     Dates: start: 20040325, end: 20040405
  2. TRILEPTAL [Concomitant]
  3. ZOLOFT [Concomitant]
  4. CLONIDINE [Concomitant]

REACTIONS (2)
  - DEHYDRATION [None]
  - VOMITING [None]
